FAERS Safety Report 19875084 (Version 2)
Quarter: 2021Q4

REPORT INFORMATION
  Report Type: Spontaneous
  Country: US (occurrence: US)
  Receive Date: 20210923
  Receipt Date: 20211022
  Transmission Date: 20220303
  Serious: No
  Sender: FDA-Public Use
  Company Number: US-MILLICENT HOLDINGS LTD.-MILL20210883

PATIENT
  Age: 61 Year
  Sex: Female
  Weight: 78.1 kg

DRUGS (3)
  1. FEMRING [Suspect]
     Active Substance: ESTRADIOL ACETATE
     Indication: Oestrogen replacement therapy
     Dosage: 0.1 MG/DAY
     Route: 067
     Dates: start: 20210830
  2. FEMRING [Suspect]
     Active Substance: ESTRADIOL ACETATE
     Dosage: 0.10 MG
     Route: 067
     Dates: start: 20200908
  3. progesterone_ [Concomitant]
     Indication: Hormone replacement therapy
     Dosage: 200 MG
     Route: 048

REACTIONS (5)
  - Asthenia [Recovered/Resolved]
  - Migraine [Recovered/Resolved]
  - Mood swings [Recovered/Resolved]
  - Breast tenderness [Recovered/Resolved]
  - Product quality issue [None]

NARRATIVE: CASE EVENT DATE: 20210901
